FAERS Safety Report 7604572-5 (Version None)
Quarter: 2011Q3

REPORT INFORMATION
  Report Type: 
  Country: None (occurrence: None)
  Receive Date: 20110712
  Receipt Date: 20110707
  Transmission Date: 20111222
  Serious: Yes (Other)
  Sender: FDA-Public Use
  Company Number: AU-PFIZER INC-2011136253

PATIENT
  Age: 37 Year
  Sex: Female

DRUGS (3)
  1. LEVLEN 28 [Concomitant]
     Indication: ORAL CONTRACEPTION
     Dosage: 150MG/30MG
     Dates: start: 20110520
  2. RELPAX [Suspect]
     Indication: MIGRAINE
     Dosage: 40 MG TAKEN ONE TO TWO TABLETS AS NEEDED
     Route: 048
     Dates: start: 20110520, end: 20110520
  3. NEXIUM [Concomitant]
     Indication: GASTROOESOPHAGEAL REFLUX DISEASE
     Dosage: 20 MG, 1X/DAY
     Route: 048
     Dates: start: 20110520

REACTIONS (5)
  - CHEST DISCOMFORT [None]
  - THROAT TIGHTNESS [None]
  - HYPERSENSITIVITY [None]
  - WHEEZING [None]
  - FLUSHING [None]
